FAERS Safety Report 19519888 (Version 2)
Quarter: 2021Q4

REPORT INFORMATION
  Report Type: Report from Study
  Country: DE (occurrence: DE)
  Receive Date: 20210712
  Receipt Date: 20211206
  Transmission Date: 20220303
  Serious: Yes (Hospitalization)
  Sender: FDA-Public Use
  Company Number: DE-BOEHRINGERINGELHEIM-2021-BI-113445

PATIENT
  Age: 83 Year
  Sex: Male
  Weight: 71 kg

DRUGS (2)
  1. NINTEDANIB [Suspect]
     Active Substance: NINTEDANIB
     Indication: Lung adenocarcinoma
     Route: 048
     Dates: start: 20210611, end: 20210701
  2. DOCETAXEL [Suspect]
     Active Substance: DOCETAXEL
     Indication: Lung adenocarcinoma
     Dosage: FORM: LIQUID?75 MG/M2 BSA
     Route: 042
     Dates: start: 20210611, end: 20210611

REACTIONS (2)
  - Gastritis [Recovered/Resolved]
  - Diarrhoea [Recovered/Resolved]

NARRATIVE: CASE EVENT DATE: 20210620
